FAERS Safety Report 12256982 (Version 1)
Quarter: 2016Q2

REPORT INFORMATION
  Report Type: Spontaneous
  Country: US (occurrence: None)
  Receive Date: 20160411
  Receipt Date: 20160411
  Transmission Date: 20160815
  Serious: No
  Sender: FDA-Public Use
  Company Number: None

PATIENT
  Age: 28 Year
  Sex: Female
  Weight: 81.65 kg

DRUGS (4)
  1. ADDERALL [Concomitant]
     Active Substance: AMPHETAMINE ASPARTATE\AMPHETAMINE SULFATE\DEXTROAMPHETAMINE SACCHARATE\DEXTROAMPHETAMINE SULFATE
  2. AMPHETAMINE-DEXTROMPHETAMINE 30, 30 MG [Suspect]
     Active Substance: AMPHETAMINE ASPARTATE\AMPHETAMINE SULFATE\DEXTROAMPHETAMINE SACCHARATE\DEXTROAMPHETAMINE SULFATE
     Indication: ATTENTION DEFICIT/HYPERACTIVITY DISORDER
     Route: 048
     Dates: start: 20160321, end: 20160328
  3. MULTIVITAMIN [Concomitant]
     Active Substance: VITAMINS
  4. CLONAZEPAM. [Concomitant]
     Active Substance: CLONAZEPAM

REACTIONS (31)
  - Thinking abnormal [None]
  - Dysarthria [None]
  - Neck pain [None]
  - Feeling abnormal [None]
  - Disturbance in attention [None]
  - Chest discomfort [None]
  - Anxiety [None]
  - Mental disorder [None]
  - Muscle spasms [None]
  - Dizziness [None]
  - Rash [None]
  - Product quality issue [None]
  - Therapy cessation [None]
  - Hypoaesthesia [None]
  - Back pain [None]
  - Nausea [None]
  - Tremor [None]
  - Pain in extremity [None]
  - Headache [None]
  - Dyspnoea [None]
  - Mood swings [None]
  - Dry mouth [None]
  - Product substitution issue [None]
  - Fatigue [None]
  - Temperature regulation disorder [None]
  - Agitation [None]
  - Social avoidant behaviour [None]
  - Depressed mood [None]
  - Dysphagia [None]
  - Drug ineffective [None]
  - Activities of daily living impaired [None]

NARRATIVE: CASE EVENT DATE: 20160401
